FAERS Safety Report 6192609-2 (Version None)
Quarter: 2009Q2

REPORT INFORMATION
  Report Type: 
  Country: None (occurrence: None)
  Receive Date: 20090518
  Receipt Date: 20090512
  Transmission Date: 20091009
  Serious: Yes (Other)
  Sender: FDA-Public Use
  Company Number: US-JNJFOC-20090502905

PATIENT
  Sex: Male
  Weight: 57.61 kg

DRUGS (5)
  1. CONCERTA [Suspect]
     Dosage: 27 MG AND 36MG
     Route: 048
  2. CONCERTA [Suspect]
     Indication: ATTENTION DEFICIT/HYPERACTIVITY DISORDER
     Route: 048
  3. SINGULAIR [Concomitant]
     Route: 065
  4. ADVAIR HFA [Concomitant]
     Route: 065
  5. RHINOCORT [Concomitant]
     Route: 065

REACTIONS (3)
  - BODY HEIGHT INCREASED [None]
  - DECREASED APPETITE [None]
  - WEIGHT INCREASED [None]
